FAERS Safety Report 16097270 (Version 3)
Quarter: 2019Q2

REPORT INFORMATION
  Report Type: Spontaneous
  Country: DE (occurrence: DE)
  Receive Date: 20190320
  Receipt Date: 20190409
  Transmission Date: 20190711
  Serious: Yes (Other)
  Sender: FDA-Public Use
  Company Number: DE-GLAXOSMITHKLINE-DE2019048792

PATIENT
  Age: 11 Year
  Sex: Female
  Weight: 34 kg

DRUGS (1)
  1. CEFUROXIME AXETIL. [Suspect]
     Active Substance: CEFUROXIME AXETIL
     Indication: TONSILLITIS
     Dosage: 250 MG, BID (THREE TABLETS IN TOTAL)
     Route: 048
     Dates: start: 20190305, end: 20190306

REACTIONS (14)
  - Hallucination, tactile [Recovered/Resolved]
  - Hallucination, visual [Recovered/Resolved]
  - Panic reaction [Recovering/Resolving]
  - Anxiety disorder [Recovering/Resolving]
  - Fear [Recovered/Resolved]
  - Disorientation [Recovering/Resolving]
  - Aggression [Recovered/Resolved]
  - Hallucination, auditory [Recovered/Resolved]
  - Paraesthesia [Recovering/Resolving]
  - Delusion [Recovered/Resolved]
  - Psychotic disorder [Recovering/Resolving]
  - Hyperventilation [Recovering/Resolving]
  - Feeling hot [Recovering/Resolving]
  - Agitation [Recovered/Resolved]

NARRATIVE: CASE EVENT DATE: 20190306
